FAERS Safety Report 11835111 (Version 1)
Quarter: 2015Q4

REPORT INFORMATION
  Report Type: Spontaneous
  Country: US (occurrence: US)
  Receive Date: 20151215
  Receipt Date: 20151215
  Transmission Date: 20160305
  Serious: Yes (Death)
  Sender: FDA-Public Use
  Company Number: US-PAR PHARMACEUTICAL COMPANIES-2015SCPR014661

PATIENT
  Age: 34 Year
  Sex: Male

DRUGS (10)
  1. ACETAMINOPHEN/DEXTROMETHORPHAN [Suspect]
     Active Substance: ACETAMINOPHEN\DEXTROMETHORPHAN
     Indication: PRODUCT USED FOR UNKNOWN INDICATION
     Dosage: UNK, UNKNOWN
     Route: 048
  2. DECONGESTANT [Suspect]
     Active Substance: UNSPECIFIED INGREDIENT
  3. SALICYLATE [Suspect]
     Active Substance: SALICYLIC ACID
     Indication: PRODUCT USED FOR UNKNOWN INDICATION
     Dosage: UNK, UNKNOWN
     Route: 048
  4. IBUPROFEN. [Suspect]
     Active Substance: IBUPROFEN
     Indication: PRODUCT USED FOR UNKNOWN INDICATION
     Dosage: UNK, UNKNOWN
     Route: 048
  5. ACETAMINOPHEN/DEXTROMETHORPHAN [Suspect]
     Active Substance: ACETAMINOPHEN\DEXTROMETHORPHAN
     Indication: PRODUCT USED FOR UNKNOWN INDICATION
     Dosage: UNK, UNKNOWN
     Route: 048
  6. ARIPIPRAZOLE. [Suspect]
     Active Substance: ARIPIPRAZOLE
     Indication: PRODUCT USED FOR UNKNOWN INDICATION
     Dosage: UNK, UNKNOWN
     Route: 048
  7. PREGABALIN. [Suspect]
     Active Substance: PREGABALIN
     Indication: PRODUCT USED FOR UNKNOWN INDICATION
     Dosage: UNK, UNKNOWN
     Route: 048
  8. ANTIHISTAMINE [Suspect]
     Active Substance: UNSPECIFIED INGREDIENT
  9. VARENICLINE [Suspect]
     Active Substance: VARENICLINE
     Indication: PRODUCT USED FOR UNKNOWN INDICATION
     Dosage: UNK, UNKNOWN
     Route: 048
  10. ETHANOL [Suspect]
     Active Substance: ALCOHOL
     Indication: PRODUCT USED FOR UNKNOWN INDICATION
     Dosage: UNK, UNKNOWN
     Route: 048

REACTIONS (3)
  - Death [Fatal]
  - Toxicity to various agents [None]
  - Completed suicide [Fatal]

NARRATIVE: CASE EVENT DATE: 2014
